FAERS Safety Report 7071748-8 (Version None)
Quarter: 2010Q4

REPORT INFORMATION
  Report Type: 
  Country: None (occurrence: None)
  Receive Date: 20101029
  Receipt Date: 20091207
  Transmission Date: 20110411
  Serious: No
  Sender: FDA-Public Use
  Company Number: A0811984A

PATIENT
  Age: 68 Year
  Sex: Female

DRUGS (10)
  1. ADVAIR DISKUS 100/50 [Suspect]
     Indication: ASTHMA
     Dosage: 1PUFF TWICE PER DAY
     Route: 055
     Dates: start: 20080401
  2. PLAVIX [Concomitant]
  3. PEPCID [Concomitant]
  4. XANAX [Concomitant]
  5. OXYCODONE [Concomitant]
  6. DETROL [Concomitant]
  7. LASIX [Concomitant]
  8. POTASSIUM CHLORIDE [Concomitant]
  9. LEVOXYL [Concomitant]
  10. ALBUTEROL [Concomitant]

REACTIONS (2)
  - DYSPNOEA [None]
  - PRODUCT QUALITY ISSUE [None]
